FAERS Safety Report 15660192 (Version 1)
Quarter: 2018Q4

REPORT INFORMATION
  Report Type: Spontaneous
  Country: US (occurrence: US)
  Receive Date: 20181127
  Receipt Date: 20181127
  Transmission Date: 20190205
  Serious: Yes (Other)
  Sender: FDA-Public Use
  Company Number: US-APOTEX-2018AP025724

PATIENT
  Age: 12 Year
  Sex: Female

DRUGS (15)
  1. MINOCYCLINE [Concomitant]
     Active Substance: MINOCYCLINE\MINOCYCLINE HYDROCHLORIDE
     Indication: STAPHYLOCOCCAL INFECTION
  2. CEFTAROLINE [Concomitant]
     Active Substance: CEFTAROLINE
     Indication: CYSTIC FIBROSIS
     Dosage: UNK, UNKNOWN
     Route: 005
  3. LINEZOLID. [Suspect]
     Active Substance: LINEZOLID
     Indication: PSEUDOMONAS INFECTION
  4. VANCOMYCIN [Concomitant]
     Active Substance: VANCOMYCIN
     Indication: CYSTIC FIBROSIS
     Dosage: CONTINOUS INTRAVENOUS INFUSION
     Route: 042
  5. LINEZOLID. [Suspect]
     Active Substance: LINEZOLID
     Indication: CYSTIC FIBROSIS
     Dosage: UNK, UNKNOWN
     Route: 065
  6. MINOCYCLINE [Concomitant]
     Active Substance: MINOCYCLINE\MINOCYCLINE HYDROCHLORIDE
     Indication: PSEUDOMONAS INFECTION
  7. CEFTAROLINE [Concomitant]
     Active Substance: CEFTAROLINE
     Indication: STAPHYLOCOCCAL INFECTION
  8. IVACAFTOR [Concomitant]
     Active Substance: IVACAFTOR
     Indication: CYSTIC FIBROSIS
     Dosage: UNK, UNKNOWN
     Route: 065
  9. LINEZOLID. [Suspect]
     Active Substance: LINEZOLID
     Indication: STAPHYLOCOCCAL INFECTION
  10. VANCOMYCIN [Concomitant]
     Active Substance: VANCOMYCIN
     Indication: PSEUDOMONAS INFECTION
  11. MINOCYCLINE [Concomitant]
     Active Substance: MINOCYCLINE\MINOCYCLINE HYDROCHLORIDE
     Indication: CYSTIC FIBROSIS
     Dosage: UNK, UNKNOWN
     Route: 065
  12. CEFTAROLINE [Concomitant]
     Active Substance: CEFTAROLINE
     Indication: PSEUDOMONAS INFECTION
  13. IVACAFTOR [Concomitant]
     Active Substance: IVACAFTOR
     Indication: STAPHYLOCOCCAL INFECTION
  14. VANCOMYCIN [Concomitant]
     Active Substance: VANCOMYCIN
     Indication: STAPHYLOCOCCAL INFECTION
  15. IVACAFTOR [Concomitant]
     Active Substance: IVACAFTOR
     Indication: PSEUDOMONAS INFECTION

REACTIONS (1)
  - Neuropathy peripheral [Unknown]
